FAERS Safety Report 11837434 (Version 3)
Quarter: 2016Q3

REPORT INFORMATION
  Report Type: Spontaneous
  Country: IT (occurrence: IT)
  Receive Date: 20151215
  Receipt Date: 20160726
  Transmission Date: 20161109
  Serious: Yes (Hospitalization)
  Sender: FDA-Public Use
  Company Number: IT-TEVA-616883ACC

PATIENT
  Age: 57 Year
  Sex: Female

DRUGS (5)
  1. CARBOLITHIUM - 300 MG CAPSULE RIGIDE - TEVA ITALIA S.R.L. [Suspect]
     Active Substance: LITHIUM CARBONATE
     Indication: PANIC ATTACK
     Dosage: 600 MILLIGRAM DAILY;
     Route: 048
  2. TRILAFON [Suspect]
     Active Substance: PERPHENAZINE
     Indication: PANIC ATTACK
     Dosage: 8 MILLIGRAM DAILY;
     Route: 048
  3. LAROXYL - 25MG COMPRESSE RIVESTITE - TEOFARMA S.R.L. [Suspect]
     Active Substance: AMITRIPTYLINE HYDROCHLORIDE
     Indication: DEPRESSION
     Dosage: 25 MILLIGRAM DAILY;
     Route: 048
  4. RIVOTRIL [Suspect]
     Active Substance: CLONAZEPAM
     Indication: DEPRESSION
     Dosage: 15 GTT DAILY;
     Route: 048
  5. NOZINAN - 25 MG COMPRESSE RIVESTITE CON FILM - SANOFI S.P.A. [Suspect]
     Active Substance: LEVOMEPROMAZINE MALEATE
     Indication: PANIC ATTACK
     Dosage: 25 MILLIGRAM DAILY;
     Route: 048

REACTIONS (5)
  - Confusional state [Recovered/Resolved]
  - Abdominal tenderness [Recovered/Resolved]
  - Abdominal distension [Recovered/Resolved]
  - Gait disturbance [Recovered/Resolved]
  - Pyrexia [Recovered/Resolved]

NARRATIVE: CASE EVENT DATE: 20151123
